FAERS Safety Report 7502789-1 (Version None)
Quarter: 2011Q2

REPORT INFORMATION
  Report Type: 
  Country: None (occurrence: None)
  Receive Date: 20110525
  Receipt Date: 20110131
  Transmission Date: 20111010
  Serious: Yes (Hospitalization, Other)
  Sender: FDA-Public Use
  Company Number: US-BAYER-201035777NA

PATIENT
  Age: 26 Year
  Sex: Female
  Weight: 79.365 kg

DRUGS (7)
  1. NAPROXEN (ALEVE) [Concomitant]
     Dosage: AS NEEDED
  2. IBUPROFEN [Concomitant]
     Dosage: AS NEEDED
  3. DROSPIRENONE AND ETHINYL ESTRADIOL [Suspect]
     Indication: PRODUCT USED FOR UNKNOWN INDICATION
     Dates: start: 20030101, end: 20091211
  4. YASMIN [Suspect]
     Indication: PRODUCT USED FOR UNKNOWN INDICATION
     Dates: start: 20030101, end: 20091211
  5. VICODIN [Concomitant]
     Dosage: PRN
     Route: 048
  6. MAALOX [Concomitant]
     Dosage: AS NEEDED
  7. ACETAMINOPHEN [Concomitant]
     Dosage: AS NEEDED

REACTIONS (3)
  - CHOLELITHIASIS [None]
  - GALLBLADDER DISORDER [None]
  - CHOLECYSTITIS CHRONIC [None]
